FAERS Safety Report 5591184-0 (Version None)
Quarter: 2008Q1

REPORT INFORMATION
  Report Type: 
  Country: None (occurrence: None)
  Receive Date: 20080111
  Receipt Date: 20080102
  Transmission Date: 20080703
  Serious: Yes (Hospitalization, Disabling)
  Sender: FDA-Public Use
  Company Number: 2008S1000052

PATIENT
  Age: 47 Year
  Sex: Female
  Weight: 65.7716 kg

DRUGS (16)
  1. FENTANYL TRANSDERMAL SYSTEM [Suspect]
     Indication: COMPLEX REGIONAL PAIN SYNDROME
     Dosage: X1, TRANSDERMAL
     Route: 062
     Dates: start: 20071104, end: 20071104
  2. FENTANYL TRANSDERMAL SYSTEM [Suspect]
     Indication: PAIN
     Dosage: X1, TRANSDERMAL
     Route: 062
     Dates: start: 20071104, end: 20071104
  3. OXYCONTIN [Concomitant]
  4. OXYIR [Concomitant]
  5. CLONAZEPAM [Concomitant]
  6. ALPRAZOLAM [Concomitant]
  7. IMITREX [Concomitant]
  8. CARISOPRODOL [Concomitant]
  9. PROMETHAZINE [Concomitant]
  10. PREVACID [Concomitant]
  11. FLUOXETINE [Concomitant]
  12. METFORMIN HCL [Concomitant]
  13. GLYBURIDE [Concomitant]
  14. LIDODERM [Concomitant]
  15. PERCOCET [Concomitant]
  16. FENTANYL [Concomitant]

REACTIONS (11)
  - BRAIN INJURY [None]
  - COMA [None]
  - DYSPNOEA [None]
  - HEPATIC FAILURE [None]
  - INCORRECT DOSE ADMINISTERED [None]
  - MEMORY IMPAIRMENT [None]
  - MYOCARDIAL INFARCTION [None]
  - PNEUMONIA [None]
  - RENAL FAILURE [None]
  - RESPIRATORY FAILURE [None]
  - WRONG TECHNIQUE IN DRUG USAGE PROCESS [None]
